FAERS Safety Report 8505794-1 (Version None)
Quarter: 2012Q3

REPORT INFORMATION
  Report Type: 
  Country: None (occurrence: None)
  Receive Date: 20120712
  Receipt Date: 20120706
  Transmission Date: 20120928
  Serious: Yes (Hospitalization)
  Sender: FDA-Public Use
  Company Number: US-BAYER-2011-080645

PATIENT
  Age: 39 Year
  Sex: Female
  Weight: 76.19 kg

DRUGS (6)
  1. YAZ [Suspect]
     Indication: CONTRACEPTION
     Dosage: UNK
     Dates: start: 20080501, end: 20080801
  2. PRENAPLUS TABLETS [Concomitant]
     Dosage: 1 TABLET DAILY
     Route: 048
     Dates: start: 20090914, end: 20091111
  3. OXYCODONE HCL AND ACETAMINOPHEN [Concomitant]
     Dosage: 5 MG/325 MG, AS NEEDED
     Route: 048
  4. YASMIN [Suspect]
     Indication: CONTRACEPTION
     Dosage: UNK
     Dates: start: 20080501, end: 20080801
  5. VITAMIN D [Concomitant]
     Dosage: 1 EVERY WEEK
     Route: 048
     Dates: start: 20090915
  6. DROSPIRENONE AND ETHINYL ESTRADIOL [Suspect]
     Indication: CONTRACEPTION
     Dosage: UNK
     Dates: start: 20080501, end: 20080801

REACTIONS (11)
  - CONSTIPATION [None]
  - EMOTIONAL DISTRESS [None]
  - INJURY [None]
  - SCAR [None]
  - DEPRESSION [None]
  - DYSPEPSIA [None]
  - DIARRHOEA [None]
  - ANXIETY [None]
  - GALLBLADDER DISORDER [None]
  - ABDOMINAL DISTENSION [None]
  - FLATULENCE [None]
